APPROVED DRUG PRODUCT: CELECOXIB
Active Ingredient: CELECOXIB
Strength: 100MG
Dosage Form/Route: CAPSULE;ORAL
Application: A213301 | Product #002
Applicant: UNICHEM LABORATORIES LTD
Approved: Jan 12, 2021 | RLD: No | RS: No | Type: DISCN